FAERS Safety Report 6793956-3 (Version None)
Quarter: 2010Q2

REPORT INFORMATION
  Report Type: 
  Country: None (occurrence: None)
  Receive Date: 20100624
  Receipt Date: 20090529
  Transmission Date: 20101027
  Serious: No
  Sender: FDA-Public Use
  Company Number: US-PFIZER INC-2009181526

PATIENT
  Sex: Female
  Weight: 77.1 kg

DRUGS (4)
  1. CALAN [Suspect]
     Indication: HYPERTENSION
     Dosage: 240 MG, 1X/DAY
  2. SYNTHROID [Concomitant]
     Dosage: UNK
  3. MEVACOR [Concomitant]
     Dosage: UNK
  4. HYDROCHLOROTHIAZIDE [Concomitant]

REACTIONS (2)
  - PRESYNCOPE [None]
  - VISUAL IMPAIRMENT [None]
